FAERS Safety Report 10010248 (Version 1)
Quarter: 2014Q1

REPORT INFORMATION
  Report Type: Spontaneous
  Country: GB (occurrence: GB)
  Receive Date: 20140313
  Receipt Date: 20140313
  Transmission Date: 20141002
  Serious: Yes (Hospitalization)
  Sender: FDA-Public Use
  Company Number: GB-TEVA-466018ISR

PATIENT
  Age: 66 Year
  Sex: Male

DRUGS (2)
  1. PREDNISOLONE [Suspect]
     Indication: MYELOFIBROSIS
     Dosage: 30 MILLIGRAM DAILY; 30 MILLIGRAM
     Route: 065
     Dates: start: 20140102
  2. THALIDOMIDE CELGENE [Suspect]
     Indication: MYELOFIBROSIS
     Dosage: 50 MILLIGRAM DAILY; 50 MILLIGRAM
     Route: 048
     Dates: start: 20140102

REACTIONS (5)
  - Upper respiratory tract infection [Recovered/Resolved]
  - Thrombocytopenia [Recovered/Resolved]
  - Anaemia [Recovered/Resolved]
  - Influenza like illness [Recovered/Resolved]
  - Pyrexia [Recovered/Resolved]
